FAERS Safety Report 8017234 (Version 10)
Quarter: 2012Q4

REPORT INFORMATION
  Report Type: 
  Country: US (occurrence: US)
  Receive Date: 20110630
  Receipt Date: 20120914
  Transmission Date: 20130627
  Serious: Yes (Hospitalization, Other)
  Sender: FDA-Public Use
  Company Number: US-009507513-1106USA03840

PATIENT

DRUGS (3)
  1. FOSAMAX [Suspect]
     Indication: OSTEOPOROSIS
     Dosage: 70 mg, UNK
     Route: 048
     Dates: start: 1997, end: 2010
  2. FOSAMAX [Suspect]
     Dosage: 10 mg, qd
     Route: 048
  3. FOSAMAX [Suspect]
     Dosage: 70 mg, UNK
     Route: 048
     Dates: start: 20080303

REACTIONS (12)
  - Femur fracture [Recovered/Resolved]
  - Fall [Unknown]
  - Benign prostatic hyperplasia [Unknown]
  - Anxiety [Not Recovered/Not Resolved]
  - Tooth disorder [Unknown]
  - Hypertension [Unknown]
  - Sinusitis [Unknown]
  - Haematuria [Unknown]
  - Dysuria [Not Recovered/Not Resolved]
  - Foot fracture [Unknown]
  - Headache [Unknown]
  - Dizziness [Unknown]
